FAERS Safety Report 7080208-X (Version None)
Quarter: 2010Q4

REPORT INFORMATION
  Report Type: 
  Country: None (occurrence: None)
  Receive Date: 20101103
  Receipt Date: 20101025
  Transmission Date: 20110411
  Serious: No
  Sender: FDA-Public Use
  Company Number: US-BIOGENIDEC-2010BI037553

PATIENT
  Age: 48 Year
  Sex: Female

DRUGS (1)
  1. TYSABRI [Suspect]
     Indication: MULTIPLE SCLEROSIS
     Route: 042
     Dates: start: 20100224

REACTIONS (5)
  - CONFUSIONAL STATE [None]
  - FRUSTRATION [None]
  - MIGRAINE [None]
  - READING DISORDER [None]
  - SPEECH DISORDER [None]
